FAERS Safety Report 5922783-1 (Version None)
Quarter: 2008Q4

REPORT INFORMATION
  Report Type: 
  Country: None (occurrence: None)
  Receive Date: 20081017
  Receipt Date: 20081013
  Transmission Date: 20090506
  Serious: Yes (Other)
  Sender: FDA-Public Use
  Company Number: US-ASTRAZENECA-2008UW22548

PATIENT
  Age: 62 Year
  Sex: Female

DRUGS (1)
  1. ARIMIDEX [Suspect]
     Route: 048
     Dates: start: 20060401

REACTIONS (10)
  - ARTHRALGIA [None]
  - ARTHRITIS [None]
  - COUGH [None]
  - FALL [None]
  - GRIP STRENGTH DECREASED [None]
  - INSOMNIA [None]
  - JOINT DISLOCATION [None]
  - MUSCLE SPASMS [None]
  - PAIN IN EXTREMITY [None]
  - UVEITIS [None]
